FAERS Safety Report 8939980 (Version 1)
Quarter: 2012Q4

REPORT INFORMATION
  Report Type: 
  Country: US (occurrence: US)
  Receive Date: 20121203
  Receipt Date: 20121203
  Transmission Date: 20130627
  Serious: Yes (Hospitalization)
  Sender: FDA-Public Use
  Company Number: US-BAYER-2012-125395

PATIENT
  Age: 49 Year
  Sex: Female

DRUGS (13)
  1. YASMIN [Suspect]
  2. ZARAH [Suspect]
  3. TYLENOL [Concomitant]
     Dosage: 325 mg, 2 pills
     Route: 048
  4. ADVIL [Concomitant]
     Dosage: 3 pills every 4 to 6 hours
     Route: 048
  5. AMOXICILLIN W/CLAVULANIC ACID [Concomitant]
     Dosage: 875 mg, 1 tablet twice daily for 10 days
     Route: 048
  6. FLUCONAZOLE [Concomitant]
     Dosage: 150 mg, UNK
     Route: 048
  7. CELEXA [Concomitant]
     Dosage: 20 mg, 1 tablet every day
     Route: 048
  8. PROMETRIUM [Concomitant]
     Dosage: 200 mg, 1 capsule every evening for 14 days a month
     Route: 048
  9. OXYCODONE [Concomitant]
  10. DIFLUCAN [Concomitant]
  11. IBUPROFEN [Concomitant]
  12. AUGMENTIN [Concomitant]
  13. ANTIBIOTICS [Concomitant]

REACTIONS (1)
  - Pulmonary embolism [None]
